FAERS Safety Report 10688534 (Version 1)
Quarter: 2014Q4

REPORT INFORMATION
  Report Type: Spontaneous
  Country: US (occurrence: None)
  Receive Date: 20141231
  Receipt Date: 20141231
  Transmission Date: 20150529
  Serious: Yes (Death, Other)
  Sender: FDA-Public Use
  Company Number: 1713747-2014-999230

PATIENT
  Sex: Male

DRUGS (3)
  1. LIBERTY CYCLER SET. [Concomitant]
  2. DELFLEX [Suspect]
     Active Substance: CALCIUM CHLORIDE\DEXTROSE MONOHYDRATE\MAGNESIUM CHLORIDE\SODIUM CHLORIDE\SODIUM LACTATE
     Indication: CHRONIC KIDNEY DISEASE
     Dosage: PERITONEAL DIALYSIS
     Dates: start: 20141112
  3. LIBERTY CYCLER [Concomitant]
     Active Substance: DEVICE

REACTIONS (1)
  - Death [None]
